FAERS Safety Report 6321170-4 (Version None)
Quarter: 2009Q3

REPORT INFORMATION
  Report Type: 
  Country: None (occurrence: None)
  Receive Date: 20090822
  Receipt Date: 20090316
  Transmission Date: 20100115
  Serious: No
  Sender: FDA-Public Use
  Company Number: US-ABBOTT-08P-163-0494840-00

PATIENT
  Sex: Female
  Weight: 61.29 kg

DRUGS (11)
  1. NIASPAN [Suspect]
     Indication: BLOOD CHOLESTEROL INCREASED
     Dates: start: 20081128, end: 20081224
  2. NIASPAN [Suspect]
     Dates: start: 20081114, end: 20081128
  3. NIASPAN [Suspect]
     Dates: start: 20090105, end: 20090201
  4. NIASPAN [Suspect]
     Dates: start: 20090303
  5. CARVEDILOL [Concomitant]
     Indication: CARDIAC FAILURE CONGESTIVE
  6. THYROID TAB [Concomitant]
     Indication: HYPOTHYROIDISM
  7. MULTI-VITAMIN [Concomitant]
     Indication: VITAMIN SUPPLEMENTATION
  8. FISH OIL [Concomitant]
     Indication: MEDICAL DIET
  9. VITAMIN B COMPLEX CAP [Concomitant]
     Indication: VITAMIN SUPPLEMENTATION
     Route: 048
  10. TYLENOL [Concomitant]
     Indication: INSOMNIA
  11. IBUPROFEN [Concomitant]
     Indication: PREMEDICATION
     Dates: start: 20090105

REACTIONS (5)
  - ACNE [None]
  - BURNING SENSATION [None]
  - PRURITUS [None]
  - RASH [None]
  - RASH PAPULAR [None]
